FAERS Safety Report 16310413 (Version 2)
Quarter: 2019Q2

REPORT INFORMATION
  Report Type: Spontaneous
  Country: DE (occurrence: DE)
  Receive Date: 20190514
  Receipt Date: 20190525
  Transmission Date: 20190711
  Serious: Yes (Other)
  Sender: FDA-Public Use
  Company Number: PHHY2018DE186229

PATIENT
  Age: 40 Year
  Sex: Female
  Weight: 96 kg

DRUGS (3)
  1. PRESINOL [Suspect]
     Active Substance: METHYLDOPA
     Indication: PRODUCT USED FOR UNKNOWN INDICATION
     Dosage: UNK
     Route: 065
     Dates: start: 201803
  2. LEVOTHYROXINE. [Suspect]
     Active Substance: LEVOTHYROXINE
     Indication: PRODUCT USED FOR UNKNOWN INDICATION
     Dosage: 150 UG, UNK (INCREASED DURING PREGNANCY)
     Route: 065
     Dates: start: 201709
  3. METOHEXAL [Suspect]
     Active Substance: METOPROLOL
     Indication: PRODUCT USED FOR UNKNOWN INDICATION
     Dosage: UNK
     Route: 065
     Dates: start: 201803

REACTIONS (6)
  - Hypertension [Unknown]
  - Maternal exposure during pregnancy [Unknown]
  - Normal newborn [Unknown]
  - Peripheral swelling [Unknown]
  - Pulmonary embolism [Unknown]
  - Embolism venous [Unknown]

NARRATIVE: CASE EVENT DATE: 20180311
